FAERS Safety Report 25509796 (Version 1)
Quarter: 2025Q3

REPORT INFORMATION
  Report Type: Spontaneous
  Country: US (occurrence: None)
  Receive Date: 20250702
  Receipt Date: 20250702
  Transmission Date: 20251021
  Serious: Yes (Other)
  Sender: FDA-CTU
  Company Number: None

PATIENT
  Age: 70 Year
  Sex: Male
  Weight: 82.8 kg

DRUGS (5)
  1. LEQVIO [Suspect]
     Active Substance: INCLISIRAN SODIUM
     Indication: Hyperlipidaemia
     Route: 058
     Dates: start: 20230620, end: 20250318
  2. Farxiga 10 mg daily [Concomitant]
  3. pantoprazole 40 mg daily [Concomitant]
  4. Valsartan 40 mg BID [Concomitant]
  5. L-methylfolate 15 mg daily [Concomitant]

REACTIONS (7)
  - Myalgia [None]
  - Fatigue [None]
  - Arthralgia [None]
  - Paraesthesia [None]
  - Hypoaesthesia [None]
  - Sleep disorder [None]
  - Impaired quality of life [None]

NARRATIVE: CASE EVENT DATE: 20250625
